FAERS Safety Report 23445051 (Version 1)
Quarter: 2024Q1

REPORT INFORMATION
  Report Type: Report from Study
  Country: US (occurrence: US)
  Receive Date: 20240125
  Receipt Date: 20240125
  Transmission Date: 20240410
  Serious: Yes (Death)
  Sender: FDA-Public Use
  Company Number: US-BAUSCH-BL-2024-001140

PATIENT
  Age: 80 Year
  Sex: Male

DRUGS (2)
  1. XIFAXAN [Suspect]
     Active Substance: RIFAXIMIN
     Indication: Hepatic encephalopathy
     Route: 048
     Dates: end: 20240114
  2. LACTULOSE [Concomitant]
     Active Substance: LACTULOSE
     Indication: Product used for unknown indication
     Dates: end: 202311

REACTIONS (4)
  - Death [Fatal]
  - Fatigue [Unknown]
  - Hospice care [Unknown]
  - Product use complaint [Unknown]

NARRATIVE: CASE EVENT DATE: 20240118
